FAERS Safety Report 6843435-X (Version None)
Quarter: 2010Q3

REPORT INFORMATION
  Report Type: 
  Country: None (occurrence: None)
  Receive Date: 20100715
  Receipt Date: 20100712
  Transmission Date: 20110219
  Serious: Yes (Death, Hospitalization)
  Sender: FDA-Public Use
  Company Number: TW-ROXANE LABORATORIES, INC.-2010-RO-00828RO

PATIENT
  Age: 67 Year
  Sex: Female
  Weight: 50 kg

DRUGS (3)
  1. LORAZEPAM [Suspect]
     Indication: SEDATION
     Route: 042
  2. MIDAZOLAM HCL [Suspect]
     Indication: SEDATION
  3. TICARCILLIN/CLAVULANATE [Suspect]
     Indication: PNEUMONIA
     Route: 042

REACTIONS (2)
  - METABOLIC ACIDOSIS [None]
  - PNEUMONIA [None]
